FAERS Safety Report 10933753 (Version 1)
Quarter: 2015Q1

REPORT INFORMATION
  Report Type: Spontaneous
  Country: JP (occurrence: JP)
  Receive Date: 20150320
  Receipt Date: 20150320
  Transmission Date: 20150721
  Serious: Yes (Hospitalization)
  Sender: FDA-Public Use
  Company Number: JP-BIOGENIDEC-2015BI018404

PATIENT
  Age: 76 Year
  Sex: Female

DRUGS (7)
  1. PREDNISONE. [Concomitant]
     Active Substance: PREDNISONE
     Indication: MULTIPLE SCLEROSIS
     Dates: start: 20150108, end: 20150123
  2. MAGLAX [Concomitant]
     Active Substance: MAGNESIUM OXIDE
  3. PURSENNID [Concomitant]
     Active Substance: SENNOSIDES A AND B
  4. IMIDAFENACIN [Concomitant]
     Active Substance: IMIDAFENACIN
  5. MEVALOTIN [Concomitant]
     Active Substance: PRAVASTATIN SODIUM
  6. AVONEX [Suspect]
     Active Substance: INTERFERON BETA-1A
     Indication: MULTIPLE SCLEROSIS
     Route: 030
     Dates: start: 20150117, end: 20150124
  7. NEXIUM [Concomitant]
     Active Substance: ESOMEPRAZOLE MAGNESIUM

REACTIONS (2)
  - Pyrexia [Recovered/Resolved]
  - Interstitial lung disease [Recovered/Resolved]

NARRATIVE: CASE EVENT DATE: 20150123
